FAERS Safety Report 8175490-1 (Version None)
Quarter: 2012Q1

REPORT INFORMATION
  Report Type: 
  Country: None (occurrence: None)
  Receive Date: 20120229
  Receipt Date: 20120224
  Transmission Date: 20120608
  Serious: Yes (Death)
  Sender: FDA-Public Use
  Company Number: US-ASTRAZENECA-2012SE13535

PATIENT
  Age: 76 Year

DRUGS (3)
  1. ACETAMINOPHEN [Suspect]
     Route: 048
  2. RABEPRAZOLE SODIUM [Suspect]
     Route: 048
  3. ESOMEPRAZOLE SODIUM [Suspect]
     Route: 048

REACTIONS (2)
  - COMPLETED SUICIDE [None]
  - TOXICITY TO VARIOUS AGENTS [None]
